FAERS Safety Report 7241217-0 (Version None)
Quarter: 2011Q1

REPORT INFORMATION
  Report Type: 
  Country: None (occurrence: None)
  Receive Date: 20110124
  Receipt Date: 20110119
  Transmission Date: 20110831
  Serious: Yes (Hospitalization)
  Sender: FDA-Public Use
  Company Number: A0755467A

PATIENT
  Age: 49 Year
  Sex: Female
  Weight: 115.5 kg

DRUGS (1)
  1. AVANDIA [Suspect]
     Dosage: 8MG PER DAY
     Route: 048
     Dates: start: 20040101, end: 20070501

REACTIONS (8)
  - OEDEMA [None]
  - HEART RATE IRREGULAR [None]
  - GAIT DISTURBANCE [None]
  - CARDIAC FAILURE CONGESTIVE [None]
  - VISION BLURRED [None]
  - MYOCARDIAL INFARCTION [None]
  - EYE SWELLING [None]
  - PAIN IN EXTREMITY [None]
